FAERS Safety Report 7964626-0 (Version None)
Quarter: 2011Q4

REPORT INFORMATION
  Report Type: 
  Country: None (occurrence: None)
  Receive Date: 20111208
  Receipt Date: 20111128
  Transmission Date: 20120403
  Serious: Yes (Hospitalization, Other)
  Sender: FDA-Public Use
  Company Number: US-SANOFI-AVENTIS-2011SA073396

PATIENT
  Age: 48 Year
  Sex: Female

DRUGS (2)
  1. LANTUS [Suspect]
     Dosage: 40-55 UNITS DAILY
     Route: 058
     Dates: start: 20100801
  2. ACTOS [Concomitant]

REACTIONS (4)
  - FOOT AMPUTATION [None]
  - HYPOGLYCAEMIA [None]
  - HYPERGLYCAEMIA [None]
  - MEDICATION ERROR [None]
